FAERS Safety Report 10215816 (Version 3)
Quarter: 2014Q3

REPORT INFORMATION
  Report Type: Spontaneous
  Country: GB (occurrence: GB)
  Receive Date: 20140604
  Receipt Date: 20140703
  Transmission Date: 20150326
  Serious: Yes (Death)
  Sender: FDA-Public Use
  Company Number: PHFR2014GB003948

PATIENT
  Sex: Male

DRUGS (1)
  1. CLOZARIL [Suspect]
     Active Substance: CLOZAPINE
     Indication: SCHIZOPHRENIA
     Dosage: 125 MG MANE AND 200 MG NOCTE
     Route: 048
     Dates: start: 20120316

REACTIONS (3)
  - Psychiatric symptom [Unknown]
  - Disturbance in social behaviour [Unknown]
  - Completed suicide [Fatal]
